FAERS Safety Report 16030350 (Version 1)
Quarter: 2019Q2

REPORT INFORMATION
  Report Type: Spontaneous
  Country: US (occurrence: US)
  Receive Date: 20190304
  Receipt Date: 20190304
  Transmission Date: 20190711
  Serious: Yes (Hospitalization)
  Sender: FDA-Public Use
  Company Number: None

PATIENT
  Age: 67 Year
  Sex: Male

DRUGS (11)
  1. CLONAZEPAM. [Concomitant]
     Active Substance: CLONAZEPAM
  2. OXYCODONE [Concomitant]
     Active Substance: OXYCODONE
  3. GAMMAGARD LIQUID [Suspect]
     Active Substance: HUMAN IMMUNOGLOBULIN G
     Indication: DEMYELINATION
     Dosage: ?          OTHER FREQUENCY:EVERY WEEK;?
     Route: 042
     Dates: start: 20190130
  4. LYRICA [Concomitant]
     Active Substance: PREGABALIN
  5. TRAMADOL. [Concomitant]
     Active Substance: TRAMADOL
  6. AMITRIPTYLIN [Concomitant]
     Active Substance: AMITRIPTYLINE
  7. LAMOTRIGINE. [Concomitant]
     Active Substance: LAMOTRIGINE
  8. LISINOPRIL. [Concomitant]
     Active Substance: LISINOPRIL
  9. CEFPODOXIME [Concomitant]
     Active Substance: CEFPODOXIME
  10. NADOLOL. [Concomitant]
     Active Substance: NADOLOL
  11. GAMMAGARD LIQUID [Suspect]
     Active Substance: HUMAN IMMUNOGLOBULIN G
     Indication: DEMYELINATION
     Dosage: ?          OTHER FREQUENCY:EVERY WEEK;?
     Route: 042
     Dates: start: 20190130

REACTIONS (4)
  - Fall [None]
  - Dysstasia [None]
  - Hypotension [None]
  - Depressed level of consciousness [None]

NARRATIVE: CASE EVENT DATE: 20190221
